FAERS Safety Report 23773272 (Version 1)
Quarter: 2024Q2

REPORT INFORMATION
  Report Type: Report from Study
  Country: US (occurrence: None)
  Receive Date: 20240423
  Receipt Date: 20240423
  Transmission Date: 20240716
  Serious: Yes (Hospitalization)
  Sender: FDA-Public Use
  Company Number: 2024A095275

PATIENT
  Age: 25436 Day
  Sex: Female
  Weight: 88.5 kg

DRUGS (1)
  1. CALQUENCE [Suspect]
     Active Substance: ACALABRUTINIB
     Indication: Chronic lymphocytic leukaemia
     Route: 048
     Dates: start: 20230410

REACTIONS (1)
  - Meningitis streptococcal [Unknown]

NARRATIVE: CASE EVENT DATE: 20240407
